FAERS Safety Report 7934698 (Version 2)
Quarter: 2014Q1

REPORT INFORMATION
  Report Type: Spontaneous
  Country: US (occurrence: US)
  Receive Date: 20110509
  Receipt Date: 20140217
  Transmission Date: 20141002
  Serious: Yes (Death, Life-Threatening)
  Sender: FDA-Public Use
  Company Number: US-RANBAXY-2011US-44116

PATIENT
  Age: 33 Year
  Sex: Female

DRUGS (1)
  1. TOPIRAMATE [Suspect]
     Indication: POST-TRAUMATIC EPILEPSY
     Dosage: UNK
     Route: 065

REACTIONS (8)
  - Grand mal convulsion [Unknown]
  - Metabolic acidosis [Fatal]
  - Rhabdomyolysis [Unknown]
  - Shock [Unknown]
  - Bandaemia [Unknown]
  - Leukocytosis [Unknown]
  - Oliguria [Unknown]
  - Multi-organ failure [Fatal]
